FAERS Safety Report 6090909-8 (Version None)
Quarter: 2009Q1

REPORT INFORMATION
  Report Type: 
  Country: None (occurrence: None)
  Receive Date: 20090220
  Receipt Date: 20090205
  Transmission Date: 20090719
  Serious: Yes (Hospitalization)
  Sender: FDA-Public Use
  Company Number: DSJ-2009-01587

PATIENT
  Age: 86 Year
  Sex: Female

DRUGS (4)
  1. OLMETEC (OLMESARTAN MEDOXOMIL) [Suspect]
     Indication: HYPERTENSION
     Dosage: 20 MG, PER ORAL/ABOUT 1 YEAR AGO
  2. NITROL (GLYCERYL TRINITRATE) (TABLET) [Suspect]
     Indication: ANGINA PECTORIS
     Dosage: 20 MG, PER ORAL/ABOUT 1 YEAR AGO
  3. DOGMATYL (SULPIRIDE) [Suspect]
     Indication: PROPHYLAXIS
     Dosage: 300 MG, PER ORAL/ABOUT 1 YEAR AGO
     Route: 048
  4. BIO THREE        (BACTERIA NOS) [Concomitant]

REACTIONS (2)
  - DEHYDRATION [None]
  - HYPONATRAEMIA [None]
